FAERS Safety Report 17855229 (Version 2)
Quarter: 2020Q2

REPORT INFORMATION
  Report Type: Report from Study
  Country: BD (occurrence: BD)
  Receive Date: 20200603
  Receipt Date: 20200608
  Transmission Date: 20200714
  Serious: Yes (Death, Hospitalization)
  Sender: FDA-Public Use
  Company Number: NVSC2020BD153475

PATIENT
  Age: 54 Year
  Sex: Male
  Weight: 65 kg

DRUGS (2)
  1. VOTRIENT [Suspect]
     Active Substance: PAZOPANIB HYDROCHLORIDE
     Indication: RENAL CELL CARCINOMA
     Dosage: 800 MG, QD (200 MG 4 TABLETS)
     Route: 048
     Dates: start: 20200312, end: 20200517
  2. GLIPITA [Concomitant]
     Indication: DIABETES MELLITUS
     Dosage: 50 MG, QD
     Route: 048

REACTIONS (6)
  - Lung neoplasm malignant [Unknown]
  - Hepatic cancer [Unknown]
  - Malignant neoplasm progression [Unknown]
  - Respiratory tract carcinoma in situ [Unknown]
  - Dyspnoea [Fatal]
  - Renal cancer metastatic [Fatal]

NARRATIVE: CASE EVENT DATE: 20200517
